FAERS Safety Report 10029189 (Version 1)
Quarter: 2014Q1

REPORT INFORMATION
  Report Type: Spontaneous
  Country: US (occurrence: US)
  Receive Date: 20140321
  Receipt Date: 20140321
  Transmission Date: 20141002
  Serious: Yes (Hospitalization)
  Sender: FDA-Public Use
  Company Number: US-B.I. PHARMACEUTICALS,INC./RIDGEFIELD-2014-BI-12223BP

PATIENT
  Age: 73 Year
  Sex: Female
  Weight: 50 kg

DRUGS (15)
  1. TRADJENTA [Suspect]
     Indication: TYPE 2 DIABETES MELLITUS
     Dosage: 5 MG
     Route: 048
     Dates: start: 20130314, end: 20140319
  2. LANTUS [Concomitant]
     Indication: TYPE 2 DIABETES MELLITUS
     Dosage: FORMULATION: SUBCUTANEOUS; STRENGTH: 20 UNITS; DAILY DOSE: 20 UNITS
     Route: 058
  3. NOVOLOG [Concomitant]
     Indication: TYPE 2 DIABETES MELLITUS
     Dosage: FORMULATION:SUBCUTANEOUS;STRENGTH: SLIDING SCALE.
     Route: 058
  4. ACETAMINOPHEN [Concomitant]
     Route: 065
  5. ATENOLOL [Concomitant]
     Indication: HYPERTENSION
     Route: 065
  6. BENZONATATE [Concomitant]
     Route: 065
  7. ZYRTEC [Concomitant]
     Route: 065
  8. EVISTA [Concomitant]
     Route: 065
  9. LISINOPRIL [Concomitant]
     Indication: RENAL DISORDER
     Route: 065
  10. LISINOPRIL [Concomitant]
     Indication: DIABETES MELLITUS
  11. LISINOPRIL [Concomitant]
     Indication: HYPERTENSION
  12. NORVASC [Concomitant]
     Indication: HYPERTENSION
     Route: 065
  13. SIMVASTATIN [Concomitant]
     Indication: BLOOD CHOLESTEROL INCREASED
     Route: 065
  14. XALATAN [Concomitant]
     Route: 065
  15. PROMETHAZINE [Concomitant]
     Route: 065

REACTIONS (7)
  - Influenza [Not Recovered/Not Resolved]
  - Pneumonia [Not Recovered/Not Resolved]
  - Nausea [Recovered/Resolved]
  - Vomiting [Recovered/Resolved]
  - Abnormal loss of weight [Not Recovered/Not Resolved]
  - Abdominal pain [Recovered/Resolved]
  - Lipase increased [Not Recovered/Not Resolved]
